FAERS Safety Report 4635497-5 (Version None)
Quarter: 2005Q2

REPORT INFORMATION
  Report Type: 
  Country: None (occurrence: None)
  Receive Date: 20050414
  Receipt Date: 20050411
  Transmission Date: 20051028
  Serious: Yes (Hospitalization)
  Sender: FDA-Public Use
  Company Number: 200415277BCC

PATIENT
  Age: 17 Year
  Sex: Female
  Weight: 54.4316 kg

DRUGS (2)
  1. MIDOL [Suspect]
     Dosage: SEE IMAGE
     Route: 048
     Dates: start: 20041101
  2. MIDOL [Suspect]
     Dosage: SEE IMAGE
     Route: 048
     Dates: start: 20041101

REACTIONS (4)
  - INTENTIONAL MISUSE [None]
  - INTENTIONAL SELF-INJURY [None]
  - TREMOR [None]
  - VOMITING [None]
